FAERS Safety Report 7485250-2 (Version None)
Quarter: 2011Q2

REPORT INFORMATION
  Report Type: 
  Country: None (occurrence: None)
  Receive Date: 20110517
  Receipt Date: 20110509
  Transmission Date: 20111010
  Serious: Yes (Other)
  Sender: FDA-Public Use
  Company Number: US-ROCHE-776914

PATIENT
  Sex: Female
  Weight: 68 kg

DRUGS (5)
  1. CAPECITABINE [Suspect]
     Indication: PSEUDOMYXOMA PERITONEI
     Route: 048
     Dates: start: 20080306, end: 20090301
  2. CAPECITABINE [Suspect]
     Route: 048
     Dates: start: 20090301, end: 20110417
  3. LIPITOR [Concomitant]
  4. TAMOXIFEN CITRATE [Concomitant]
  5. SULINDAC [Concomitant]

REACTIONS (4)
  - SKIN EXFOLIATION [None]
  - TENDERNESS [None]
  - BLISTER [None]
  - ACTIVITIES OF DAILY LIVING IMPAIRED [None]
